FAERS Safety Report 12390035 (Version 1)
Quarter: 2016Q2

REPORT INFORMATION
  Report Type: Report from Study
  Country: CA (occurrence: CA)
  Receive Date: 20160520
  Receipt Date: 20160520
  Transmission Date: 20160815
  Serious: Yes (Hospitalization)
  Sender: FDA-Public Use
  Company Number: CA-JNJFOC-20160514728

PATIENT
  Age: 60 Year
  Sex: Female
  Weight: 74 kg

DRUGS (1)
  1. REMICADE [Suspect]
     Active Substance: INFLIXIMAB
     Indication: CROHN^S DISEASE
     Route: 042

REACTIONS (6)
  - Diarrhoea [Unknown]
  - Infusion related reaction [Unknown]
  - Product use issue [Unknown]
  - Chest discomfort [Unknown]
  - Off label use [Unknown]
  - Dyspnoea [Unknown]

NARRATIVE: CASE EVENT DATE: 2016
